FAERS Safety Report 21944876 (Version 1)
Quarter: 2023Q1

REPORT INFORMATION
  Report Type: Spontaneous
  Country: GB (occurrence: GB)
  Receive Date: 20230202
  Receipt Date: 20230202
  Transmission Date: 20230417
  Serious: Yes (Hospitalization)
  Sender: FDA-Public Use
  Company Number: GB-MHRA-MED-202301290901107660-WPQFL

PATIENT
  Age: 46 Year
  Sex: Female

DRUGS (7)
  1. CANDESARTAN [Suspect]
     Active Substance: CANDESARTAN
     Indication: Migraine
     Dosage: 4 MILLIGRAM, QD (4MG DAILY)
     Route: 065
     Dates: start: 20230119, end: 20230129
  2. FEXOFENADINE [Concomitant]
     Active Substance: FEXOFENADINE HYDROCHLORIDE
     Dosage: UNK
     Route: 065
  3. IMIPRAMINE [Concomitant]
     Active Substance: IMIPRAMINE
     Dosage: UNK
     Route: 065
  4. LAMOTRIGINE [Concomitant]
     Active Substance: LAMOTRIGINE
     Dosage: UNK
     Route: 065
  5. MEDROXYPROGESTERONE [Concomitant]
     Active Substance: MEDROXYPROGESTERONE
     Dosage: UNK
     Route: 065
  6. OMEPRAZOLE [Concomitant]
     Active Substance: OMEPRAZOLE
     Dosage: UNK
     Route: 065
  7. TOPIRAMATE [Concomitant]
     Active Substance: TOPIRAMATE
     Dosage: UNK
     Route: 065

REACTIONS (3)
  - Abdominal pain [Not Recovered/Not Resolved]
  - Vomiting [Recovered/Resolved]
  - Medication error [Unknown]
